FAERS Safety Report 9964351 (Version 2)
Quarter: 2014Q2

REPORT INFORMATION
  Report Type: Spontaneous
  Country: US (occurrence: US)
  Receive Date: 20140305
  Receipt Date: 20140509
  Transmission Date: 20141212
  Serious: Yes (Congenital Anomaly, Other)
  Sender: FDA-Public Use
  Company Number: US-PFIZER INC-2014061829

PATIENT
  Sex: Male

DRUGS (11)
  1. SERTRALINE HCL [Suspect]
     Dosage: UNK
     Route: 064
     Dates: start: 200512, end: 201007
  2. PROMETHAZINE [Concomitant]
     Dosage: UNK
     Route: 064
  3. BIFERA RX [Concomitant]
     Dosage: UNK
     Route: 064
  4. BUSPIRONE [Concomitant]
     Dosage: UNK
     Route: 064
  5. OBTREX DHA [Concomitant]
     Dosage: UNK
     Route: 064
  6. ACETAMINOPHEN W/ CODEINE #3 [Concomitant]
     Dosage: UNK
     Route: 064
  7. CEFUROXIME [Concomitant]
     Dosage: UNK
     Route: 064
  8. AMOXICILLIN [Concomitant]
     Dosage: UNK
     Route: 064
  9. AZITHROMYCIN [Concomitant]
     Dosage: UNK
     Route: 064
  10. PENICILLIN [Concomitant]
     Dosage: UNK
     Route: 064
  11. NITROFURANTOIN [Concomitant]
     Dosage: UNK
     Route: 064

REACTIONS (2)
  - Foetal exposure during pregnancy [Unknown]
  - Talipes [Unknown]
